FAERS Safety Report 9719602 (Version 1)
Quarter: 2013Q4

REPORT INFORMATION
  Report Type: Spontaneous
  Country: US (occurrence: US)
  Receive Date: 20131128
  Receipt Date: 20131128
  Transmission Date: 20140711
  Serious: Yes (Other)
  Sender: FDA-Public Use
  Company Number: US-BIOGENIDEC-2013BI113213

PATIENT
  Age: 40 Year
  Sex: Female

DRUGS (6)
  1. AVONEX [Suspect]
     Indication: RELAPSING-REMITTING MULTIPLE SCLEROSIS
     Route: 030
  2. AVONEX [Suspect]
     Indication: RELAPSING-REMITTING MULTIPLE SCLEROSIS
     Route: 030
     Dates: start: 20120411
  3. BACLOFEN [Concomitant]
  4. CELEXA [Concomitant]
  5. LORAZEPAM [Concomitant]
  6. RITALIN [Concomitant]

REACTIONS (2)
  - Suicidal behaviour [Not Recovered/Not Resolved]
  - Drug ineffective [Unknown]
